FAERS Safety Report 9439892 (Version 2)
Quarter: 2013Q3

REPORT INFORMATION
  Report Type: Report from Study
  Country: US (occurrence: US)
  Receive Date: 20130805
  Receipt Date: 20130905
  Transmission Date: 20140515
  Serious: Yes (Hospitalization)
  Sender: FDA-Public Use
  Company Number: US-JNJFOC-20130716078

PATIENT
  Age: 12 Year
  Sex: Female
  Weight: 57.5 kg

DRUGS (10)
  1. REMICADE [Suspect]
     Indication: JUVENILE IDIOPATHIC ARTHRITIS
     Route: 042
     Dates: start: 20101206, end: 201204
  2. 5-ASA [Concomitant]
     Route: 048
  3. TOCILIZUMAB [Concomitant]
     Route: 065
  4. RIZATRIPTAN [Concomitant]
     Route: 065
  5. VICODIN [Concomitant]
     Route: 065
  6. NEXIUM [Concomitant]
     Route: 065
  7. PROPRANOLOL [Concomitant]
     Route: 065
  8. CHOLECALCIFEROL [Concomitant]
     Route: 065
  9. CELEBREX [Concomitant]
     Route: 065
  10. DONNATAL [Concomitant]
     Route: 065

REACTIONS (1)
  - Osteoarthritis [Recovered/Resolved]
